FAERS Safety Report 20787626 (Version 1)
Quarter: 2022Q2

REPORT INFORMATION
  Report Type: Spontaneous
  Country: US (occurrence: US)
  Receive Date: 20220505
  Receipt Date: 20220505
  Transmission Date: 20220721
  Serious: Yes (Hospitalization, Other)
  Sender: FDA-Public Use
  Company Number: US-AMGEN-USASP2022072527

PATIENT
  Age: 28 Year
  Sex: Female

DRUGS (6)
  1. DARBEPOETIN ALFA [Suspect]
     Active Substance: DARBEPOETIN ALFA
     Indication: Chronic kidney disease
     Dosage: UNK, QWK
     Route: 065
  2. TACROLIMUS [Concomitant]
     Active Substance: TACROLIMUS
  3. MYCOPHENOLIC ACID [Concomitant]
     Active Substance: MYCOPHENOLIC ACID
  4. APIXABAN [Concomitant]
     Active Substance: APIXABAN
  5. INSULIN NOS [Concomitant]
     Active Substance: INSULIN NOS
  6. NADOLOL [Concomitant]
     Active Substance: NADOLOL

REACTIONS (3)
  - Anaemia [Unknown]
  - Optic neuropathy [Unknown]
  - Cerebral haemosiderin deposition [Unknown]
